FAERS Safety Report 16333978 (Version 2)
Quarter: 2019Q2

REPORT INFORMATION
  Report Type: Spontaneous
  Country: TR (occurrence: TR)
  Receive Date: 20190520
  Receipt Date: 20190523
  Transmission Date: 20190711
  Serious: Yes (Other)
  Sender: FDA-Public Use
  Company Number: TR-NOVOPROD-662496

PATIENT
  Sex: Female
  Weight: 70 kg

DRUGS (1)
  1. INSULATARD HM PENFILL [Suspect]
     Active Substance: INSULIN NOS
     Indication: TYPE 2 DIABETES MELLITUS
     Dosage: 6 IU, BID (2 X 6 IU)
     Route: 058
     Dates: start: 20190507, end: 20190515

REACTIONS (4)
  - Abortion [Unknown]
  - Foetal growth restriction [Unknown]
  - Foetal heart rate abnormal [Unknown]
  - Exposure during pregnancy [Recovered/Resolved]

NARRATIVE: CASE EVENT DATE: 20190507
